FAERS Safety Report 6747573-1 (Version None)
Quarter: 2010Q2

REPORT INFORMATION
  Report Type: 
  Country: None (occurrence: None)
  Receive Date: 20100528
  Receipt Date: 20100520
  Transmission Date: 20101027
  Serious: Yes (Other)
  Sender: FDA-Public Use
  Company Number: GB-ABBOTT-08P-167-0487864-00

PATIENT
  Age: 40 Year
  Sex: Female

DRUGS (4)
  1. NORVIR [Suspect]
     Indication: ANTIRETROVIRAL THERAPY
     Dosage: 100 MG DAILY
     Route: 048
     Dates: start: 20070608
  2. ETRAVIRINE [Suspect]
     Indication: ANTIRETROVIRAL THERAPY
     Dosage: 200 MG DAILY
     Route: 048
     Dates: start: 20070713
  3. DARUNAVIR [Suspect]
     Indication: ANTIRETROVIRAL THERAPY
     Dosage: 600 MG DAILY
     Route: 048
     Dates: start: 20060608
  4. ISENTRESS [Suspect]
     Indication: ANTIRETROVIRAL THERAPY
     Dosage: 600 MG DAILY
     Route: 048
     Dates: start: 20060608

REACTIONS (2)
  - ABORTION SPONTANEOUS [None]
  - CHORIOAMNIONITIS [None]
